FAERS Safety Report 8552996-4 (Version None)
Quarter: 2012Q3

REPORT INFORMATION
  Report Type: 
  Country: None (occurrence: None)
  Receive Date: 20120731
  Receipt Date: 20120723
  Transmission Date: 20120928
  Serious: Yes (Life-Threatening, Hospitalization)
  Sender: FDA-Public Use
  Company Number: DE-BAYER-2012-024764

PATIENT
  Age: 80 Year
  Sex: Male
  Weight: 48 kg

DRUGS (7)
  1. SORAFENIB (RAF KINASE INHIBITOR) [Suspect]
     Dosage: DAILY DOSE 200 MG
     Dates: start: 20110815, end: 20110901
  2. NEXAVAR [Suspect]
     Dosage: DAILY DOSE 400 MG
     Dates: start: 20091218, end: 20101021
  3. NEXAVAR [Suspect]
     Dosage: INTERRUPTED
     Dates: start: 20110901, end: 20120524
  4. NEXAVAR [Suspect]
     Dosage: UNK
  5. SORAFENIB (RAF KINASE INHIBITOR) [Suspect]
     Indication: HEPATIC NEOPLASM MALIGNANT
     Dosage: DAILY DOSE 400 MG
     Dates: start: 20101209, end: 20110815
  6. NEXAVAR [Suspect]
     Indication: HEPATIC NEOPLASM MALIGNANT
     Dosage: DAILY DOSE 800 MG
     Dates: start: 20091027, end: 20091217
  7. NEXAVAR [Suspect]
     Dosage: DAILY DOSE 400 MG
     Dates: start: 20101030, end: 20110831

REACTIONS (3)
  - HEMIPARESIS [None]
  - CEREBRAL INFARCTION [None]
  - SPEECH DISORDER [None]
